FAERS Safety Report 5817785-X (Version None)
Quarter: 2008Q3

REPORT INFORMATION
  Report Type: 
  Country: None (occurrence: None)
  Receive Date: 20080722
  Receipt Date: 20080711
  Transmission Date: 20090109
  Serious: Yes (Hospitalization)
  Sender: FDA-Public Use
  Company Number: BE-AMGEN-UK272167

PATIENT
  Sex: Male

DRUGS (21)
  1. PANITUMUMAB [Suspect]
     Indication: SQUAMOUS CELL CARCINOMA
     Route: 042
     Dates: start: 20080219, end: 20080314
  2. CISPLATIN [Suspect]
     Route: 042
     Dates: start: 20080409, end: 20080409
  3. CISPLATIN [Suspect]
     Route: 065
     Dates: start: 20080219, end: 20080314
  4. DOCETAXEL [Suspect]
     Route: 065
     Dates: start: 20080219, end: 20080314
  5. FLUOROURACIL [Suspect]
     Route: 065
     Dates: start: 20080219, end: 20080319
  6. ISOBETADINE [Concomitant]
     Route: 061
     Dates: start: 20080418
  7. FRAXIPARINE [Concomitant]
     Route: 058
     Dates: start: 20080108
  8. LORAMET [Concomitant]
     Route: 048
     Dates: start: 20080202
  9. FRAXIPARINE [Concomitant]
     Route: 058
     Dates: start: 20080108
  10. CORSODYL [Concomitant]
     Route: 048
     Dates: start: 20080202
  11. DAFALGAN [Concomitant]
     Route: 048
     Dates: start: 20080202
  12. THIAMINE [Concomitant]
     Route: 042
     Dates: start: 20080322, end: 20080323
  13. THIAMINE [Concomitant]
     Route: 042
     Dates: start: 20080403, end: 20080407
  14. ZANTAC [Concomitant]
     Route: 042
     Dates: start: 20080322, end: 20080407
  15. SERTRALINE [Concomitant]
     Route: 048
     Dates: start: 20080324, end: 20080330
  16. FLAGYL [Concomitant]
     Route: 048
     Dates: start: 20080225, end: 20080407
  17. MOTILIUM [Concomitant]
     Route: 048
     Dates: start: 20080319, end: 20080324
  18. LITICAN [Concomitant]
     Route: 042
     Dates: start: 20080320, end: 20080322
  19. PRIMPERAN TAB [Concomitant]
     Route: 042
     Dates: start: 20080325, end: 20080327
  20. HALDOL [Concomitant]
     Route: 042
     Dates: start: 20080403, end: 20080407
  21. KCL-RETARD [Concomitant]
     Route: 042
     Dates: start: 20080321, end: 20080407

REACTIONS (6)
  - DIARRHOEA [None]
  - FEBRILE NEUTROPENIA [None]
  - GENERAL PHYSICAL HEALTH DETERIORATION [None]
  - SEPSIS [None]
  - SEPTIC SHOCK [None]
  - THROMBOCYTOPENIA [None]
